FAERS Safety Report 17879704 (Version 1)
Quarter: 2020Q2

REPORT INFORMATION
  Report Type: Report from Study
  Country: GB (occurrence: GB)
  Receive Date: 20200610
  Receipt Date: 20200610
  Transmission Date: 20200714
  Serious: Yes (Other)
  Sender: FDA-Public Use
  Company Number: GB-BAUSCH-BL-2020-016764

PATIENT
  Age: 52 Year
  Sex: Male

DRUGS (1)
  1. KYNTHEUM [Suspect]
     Active Substance: BRODALUMAB
     Indication: PSORIASIS
     Dosage: 210 MG WEEK 0, 1, 2 THEN EVERY TWO WEEKS
     Route: 058

REACTIONS (2)
  - Yellow fever [Unknown]
  - Influenza [Unknown]
